FAERS Safety Report 8342711-1 (Version None)
Quarter: 2012Q2

REPORT INFORMATION
  Report Type: 
  Country: None (occurrence: None)
  Receive Date: 20120502
  Receipt Date: 20120420
  Transmission Date: 20120825
  Serious: Yes (Hospitalization)
  Sender: FDA-Public Use
  Company Number: 2012SP021790

PATIENT
  Age: 92 Year
  Sex: Female

DRUGS (1)
  1. HEPARIN [Suspect]
     Indication: SURGERY
     Dosage: 5000 IU;  ; IV
     Route: 042

REACTIONS (5)
  - CYANOSIS [None]
  - LEG AMPUTATION [None]
  - POSTOPERATIVE WOUND COMPLICATION [None]
  - HEPARIN-INDUCED THROMBOCYTOPENIA [None]
  - TOE AMPUTATION [None]
